FAERS Safety Report 7368647-0 (Version None)
Quarter: 2011Q1

REPORT INFORMATION
  Report Type: 
  Country: None (occurrence: None)
  Receive Date: 20110308
  Receipt Date: 20110225
  Transmission Date: 20110831
  Serious: Yes (Other)
  Sender: FDA-Public Use
  Company Number: 2011SP009695

PATIENT
  Sex: Female

DRUGS (1)
  1. NEXPLANON (ETONOGESTREL /01502301/) [Suspect]
     Indication: CONTRACEPTION
     Dosage: 1 DF

REACTIONS (1)
  - LIP SWELLING [None]
